FAERS Safety Report 23060308 (Version 1)
Quarter: 2023Q4

REPORT INFORMATION
  Report Type: Spontaneous
  Country: IL (occurrence: IL)
  Receive Date: 20231012
  Receipt Date: 20231012
  Transmission Date: 20240110
  Serious: Yes (Death, Hospitalization, Other)
  Sender: FDA-Public Use
  Company Number: IL-002147023-NVSC2023IL213527

PATIENT

DRUGS (1)
  1. RUXOLITINIB [Suspect]
     Active Substance: RUXOLITINIB
     Indication: Myelofibrosis
     Dosage: 15 MG
     Route: 065

REACTIONS (7)
  - Acute erythroid leukaemia [Unknown]
  - Second primary malignancy [Unknown]
  - Bacteraemia [Unknown]
  - Platelet count decreased [Unknown]
  - Death [Fatal]
  - Anaemia [Unknown]
  - Tumour lysis syndrome [Unknown]
